FAERS Safety Report 8990828 (Version 1)
Quarter: 2012Q4

REPORT INFORMATION
  Report Type: Spontaneous
  Country: US (occurrence: None)
  Receive Date: 20121226
  Receipt Date: 20121226
  Transmission Date: 20130627
  Serious: Yes (Life-Threatening)
  Sender: FDA-Public Use
  Company Number: None

PATIENT
  Age: 59 Year
  Sex: Male
  Weight: 91.63 kg

DRUGS (1)
  1. ZICAM ORAL MIST ZINCUM ACETICUM GLUCONICUM 2X,1X ZICAM [Suspect]
     Indication: COLD SYMPTOMS
     Dosage: 4 sprays every 3 hours po
     Route: 048
     Dates: start: 20121220, end: 20121221

REACTIONS (1)
  - Ageusia [None]
